FAERS Safety Report 5542953-4 (Version None)
Quarter: 2007Q4

REPORT INFORMATION
  Report Type: 
  Country: None (occurrence: None)
  Receive Date: 20071210
  Receipt Date: 20071203
  Transmission Date: 20080405
  Serious: Yes (Life-Threatening, Hospitalization, Other)
  Sender: FDA-Public Use
  Company Number: CZ-MERCK-0712CZE00002

PATIENT
  Age: 59 Year
  Sex: Female
  Weight: 74 kg

DRUGS (4)
  1. FOSAMAX [Suspect]
     Indication: OSTEOPOROTIC FRACTURE
     Route: 048
     Dates: start: 20070206, end: 20070808
  2. PREDNISONE [Concomitant]
     Route: 065
  3. RANITIDINE [Concomitant]
     Route: 065
  4. ASPIRIN AND CAFFEINE AND CODEINE PHOSPHATE AND PHENOBARBITAL [Concomitant]
     Route: 065

REACTIONS (2)
  - IRON DEFICIENCY ANAEMIA [None]
  - PEPTIC ULCER [None]
